FAERS Safety Report 9655930 (Version 4)
Quarter: 2014Q2

REPORT INFORMATION
  Report Type: Report from Study
  Country: BR (occurrence: BR)
  Receive Date: 20131030
  Receipt Date: 20140407
  Transmission Date: 20141212
  Serious: Yes (Death, Hospitalization)
  Sender: FDA-Public Use
  Company Number: BR-ROCHE-1276739

PATIENT
  Age: 56 Year
  Sex: Female
  Weight: 67 kg

DRUGS (2)
  1. MABTHERA [Suspect]
     Indication: RHEUMATOID ARTHRITIS
     Dosage: LAST INFUSION WAS ON 21/AUG/2013.
     Route: 065
     Dates: start: 20111018
  2. CAPTOPRIL [Concomitant]

REACTIONS (3)
  - Gastric neoplasm [Fatal]
  - Gastrointestinal infection [Unknown]
  - Gastric disorder [Unknown]
